FAERS Safety Report 11988359 (Version 1)
Quarter: 2016Q1

REPORT INFORMATION
  Report Type: Spontaneous
  Country: RO (occurrence: RO)
  Receive Date: 20160202
  Receipt Date: 20160202
  Transmission Date: 20160526
  Serious: Yes (Other)
  Sender: FDA-Public Use
  Company Number: RO-FRESENIUS KABI-FK201600481

PATIENT
  Age: 63 Year
  Sex: Female

DRUGS (3)
  1. VANCOMYCIN (MANUFACTURER UNKNOWN) [Suspect]
     Active Substance: VANCOMYCIN
     Indication: CLOSTRIDIUM DIFFICILE COLITIS
     Route: 048
  2. TEICOPLANIN [Suspect]
     Active Substance: TEICOPLANIN
     Route: 042
  3. TEICOPLANIN [Suspect]
     Active Substance: TEICOPLANIN
     Indication: CLOSTRIDIUM DIFFICILE COLITIS
     Route: 042

REACTIONS (2)
  - Enterococcal sepsis [Recovered/Resolved]
  - Drug resistance [Recovered/Resolved]
